FAERS Safety Report 7804587-8 (Version None)
Quarter: 2011Q4

REPORT INFORMATION
  Report Type: 
  Country: None (occurrence: None)
  Receive Date: 20111010
  Receipt Date: 20111003
  Transmission Date: 20120403
  Serious: Yes (Other)
  Sender: FDA-Public Use
  Company Number: US-AMGEN-USASP2011049733

PATIENT
  Age: 49 Year
  Sex: Female

DRUGS (7)
  1. TREXALL [Concomitant]
     Dosage: 0.7 UNK, QWK
     Route: 058
     Dates: start: 20110201
  2. FOLIC ACID [Concomitant]
     Dosage: UNK UNK, QD
  3. LORTAB [Concomitant]
     Dosage: 5 MG, PRN
  4. CALTRATE D                         /00944201/ [Concomitant]
     Dosage: UNK
  5. ENBREL [Suspect]
     Indication: RHEUMATOID ARTHRITIS
     Dosage: 50 MG, QWK
     Route: 058
     Dates: start: 20110725
  6. PREDNISONE [Concomitant]
     Dosage: 5.25 MG, QD
  7. LISINOPRIL [Concomitant]
     Dosage: UNK

REACTIONS (11)
  - DERMATITIS CONTACT [None]
  - SYNOVIAL DISORDER [None]
  - JOINT EFFUSION [None]
  - DEPRESSION [None]
  - RED BLOOD CELL SEDIMENTATION RATE INCREASED [None]
  - NEUROPATHY PERIPHERAL [None]
  - RASH [None]
  - ANXIETY [None]
  - BURNING SENSATION [None]
  - LOGORRHOEA [None]
  - RASH PRURITIC [None]
